FAERS Safety Report 8367021-8 (Version None)
Quarter: 2012Q2

REPORT INFORMATION
  Report Type: 
  Country: None (occurrence: None)
  Receive Date: 20120517
  Receipt Date: 20120514
  Transmission Date: 20120825
  Serious: Yes (Other)
  Sender: FDA-Public Use
  Company Number: CA-AMGEN-CANSP2012028870

PATIENT
  Sex: Male

DRUGS (5)
  1. VOLTAREN [Concomitant]
     Dosage: 500 MG, QD
  2. ENBREL [Suspect]
     Indication: ANKYLOSING SPONDYLITIS
     Dosage: 50 MG, QWK
     Dates: start: 20091110
  3. LIPITOR [Concomitant]
     Dosage: 20 MG, QD
  4. OMEPRAZOLE (PRISOLEC) [Concomitant]
     Dosage: UNK UNK, QD
  5. ESCITALOPRAM [Concomitant]
     Dosage: 20 MG, QD

REACTIONS (3)
  - ASTHENIA [None]
  - APATHY [None]
  - FATIGUE [None]
